FAERS Safety Report 4658090-7 (Version None)
Quarter: 2005Q2

REPORT INFORMATION
  Report Type: 
  Country: None (occurrence: None)
  Receive Date: 20050509
  Receipt Date: 20050427
  Transmission Date: 20051028
  Serious: Yes (Death, Hospitalization)
  Sender: FDA-Public Use
  Company Number: HQWYE416628APR05

PATIENT
  Age: 34 Year
  Sex: Female

DRUGS (1)
  1. TRIQUILAR (LEVONORGESTREL/ETHINYL ESTRADIOL, TABLET) [Suspect]
     Indication: ORAL CONTRACEPTION
     Dosage: 1 TABLET 1X PER 1 DAY, ORAL/^MANY YEARS^
     Route: 048
     Dates: end: 20041226

REACTIONS (25)
  - ALANINE AMINOTRANSFERASE INCREASED [None]
  - BLOOD LACTATE DEHYDROGENASE INCREASED [None]
  - BLOOD THYROID STIMULATING HORMONE INCREASED [None]
  - CARDIAC FAILURE [None]
  - DILATATION VENTRICULAR [None]
  - FALL [None]
  - HAEMOGLOBIN DECREASED [None]
  - HAEMORRHAGE [None]
  - HEPATIC NECROSIS [None]
  - INTERNATIONAL NORMALISED RATIO INCREASED [None]
  - INTRACARDIAC THROMBUS [None]
  - JUGULAR VEIN THROMBOSIS [None]
  - LIVER DISORDER [None]
  - LUNG DISORDER [None]
  - NEOPLASM MALIGNANT [None]
  - PCO2 DECREASED [None]
  - PH BODY FLUID INCREASED [None]
  - PULMONARY EMBOLISM [None]
  - RENAL DISORDER [None]
  - SHOCK [None]
  - SUBCLAVIAN VEIN THROMBOSIS [None]
  - SYNCOPE [None]
  - VENA CAVA THROMBOSIS [None]
  - VENTRICULAR HYPERTROPHY [None]
  - WHITE BLOOD CELL COUNT INCREASED [None]
